FAERS Safety Report 13346580 (Version 1)
Quarter: 2017Q1

REPORT INFORMATION
  Report Type: Spontaneous
  Country: FR (occurrence: FR)
  Receive Date: 20170317
  Receipt Date: 20170317
  Transmission Date: 20170428
  Serious: Yes (Hospitalization, Other)
  Sender: FDA-Public Use
  Company Number: FR-ASTRAZENECA-2017SE27725

PATIENT
  Age: 78 Year
  Sex: Male

DRUGS (8)
  1. KARDEGIC [Suspect]
     Active Substance: ASPIRIN LYSINE
     Indication: VASCULAR DEVICE USER
     Route: 048
     Dates: start: 20170222
  2. KARDEGIC [Suspect]
     Active Substance: ASPIRIN LYSINE
     Indication: VASCULAR DEVICE USER
     Route: 048
     Dates: end: 20170219
  3. CRESTOR [Suspect]
     Active Substance: ROSUVASTATIN CALCIUM
     Indication: HYPERCHOLESTEROLAEMIA
     Route: 048
     Dates: start: 20170221
  4. ZOLPIDEM [Concomitant]
     Active Substance: ZOLPIDEM\ZOLPIDEM TARTRATE
  5. PLAVIX [Suspect]
     Active Substance: CLOPIDOGREL BISULFATE
     Indication: VASCULAR DEVICE USER
     Route: 048
     Dates: end: 20170219
  6. CRESTOR [Suspect]
     Active Substance: ROSUVASTATIN CALCIUM
     Indication: HYPERCHOLESTEROLAEMIA
     Route: 048
     Dates: end: 20170219
  7. INEXIUM [Concomitant]
     Active Substance: ESOMEPRAZOLE
  8. LEVOTHYROX [Concomitant]
     Active Substance: LEVOTHYROXINE

REACTIONS (2)
  - Subdural haematoma [Recovering/Resolving]
  - Fall [Unknown]

NARRATIVE: CASE EVENT DATE: 20170219
